FAERS Safety Report 8386852-1 (Version None)
Quarter: 2012Q2

REPORT INFORMATION
  Report Type: 
  Country: None (occurrence: None)
  Receive Date: 20120525
  Receipt Date: 20120521
  Transmission Date: 20120825
  Serious: Yes (Other)
  Sender: FDA-Public Use
  Company Number: FR-ROXANE LABORATORIES, INC.-2012-RO-01282RO

PATIENT
  Age: 4 Year
  Sex: Male

DRUGS (5)
  1. TACROLIMUS [Suspect]
     Indication: IMMUNOSUPPRESSANT DRUG THERAPY
     Dosage: 2.5 MG
     Dates: start: 20090901
  2. PREDNISONE TAB [Suspect]
     Indication: IMMUNOSUPPRESSANT DRUG THERAPY
  3. AMLODIPINE BESYLATE [Suspect]
     Indication: HYPERTENSION
  4. MYCOPHENOLATE MOFETIL [Suspect]
     Indication: IMMUNOSUPPRESSANT DRUG THERAPY
  5. ENALAPRIL MALEATE [Suspect]
     Indication: HYPERTENSION

REACTIONS (2)
  - HYPERTENSION [None]
  - DRUG INTERACTION [None]
